FAERS Safety Report 7220344-8 (Version None)
Quarter: 2011Q1

REPORT INFORMATION
  Report Type: 
  Country: None (occurrence: None)
  Receive Date: 20110111
  Receipt Date: 20110105
  Transmission Date: 20110831
  Serious: Yes (Hospitalization)
  Sender: FDA-Public Use
  Company Number: BR-ABBOTT-11P-020-0695583-00

PATIENT
  Sex: Male
  Weight: 52 kg

DRUGS (5)
  1. MODULEN [Concomitant]
     Indication: MALNUTRITION
     Route: 048
     Dates: start: 20060101
  2. HUMIRA [Suspect]
     Route: 058
     Dates: end: 20101220
  3. HUMIRA [Suspect]
     Dosage: LOADING DOSE 80MG
     Route: 058
  4. PHENYTOIN [Concomitant]
     Indication: CONVULSION
     Route: 048
     Dates: start: 19960101
  5. HUMIRA [Suspect]
     Indication: CROHN'S DISEASE
     Dosage: LOADING DOSE 180MG
     Route: 058
     Dates: start: 20090521

REACTIONS (4)
  - ABDOMINAL PAIN [None]
  - ANAEMIA [None]
  - BACTERIAL TEST POSITIVE [None]
  - DIARRHOEA [None]
